FAERS Safety Report 25570992 (Version 2)
Quarter: 2025Q3

REPORT INFORMATION
  Report Type: Spontaneous
  Country: EU (occurrence: EU)
  Receive Date: 20250717
  Receipt Date: 20250801
  Transmission Date: 20251020
  Serious: Yes (Life-Threatening)
  Sender: CSL BEHRING
  Company Number: None

PATIENT
  Age: 78 Year
  Sex: Male
  Weight: 84 kg

DRUGS (1)
  1. PRIVIGEN [Suspect]
     Active Substance: HUMAN IMMUNOGLOBULIN G
     Route: 065
     Dates: start: 20250702

REACTIONS (5)
  - Hypersensitivity [Recovered/Resolved]
  - Blood pressure decreased [Recovered/Resolved]
  - Chills [Recovered/Resolved]
  - Back pain [Recovered/Resolved]
  - Chest pain [Recovered/Resolved]

NARRATIVE: CASE EVENT DATE: 20250702
